FAERS Safety Report 14716120 (Version 1)
Quarter: 2018Q2

REPORT INFORMATION
  Report Type: Spontaneous
  Country: CN (occurrence: CN)
  Receive Date: 20180404
  Receipt Date: 20180404
  Transmission Date: 20180711
  Serious: Yes (Hospitalization, Other)
  Sender: FDA-Public Use
  Company Number: CN-PFIZER INC-2018134400

PATIENT
  Age: 58 Year
  Sex: Female
  Weight: 58 kg

DRUGS (14)
  1. MEDROL [Suspect]
     Active Substance: METHYLPREDNISOLONE
     Indication: INFECTION
     Dosage: 32 MG, 1X/DAY
     Route: 048
     Dates: start: 20171213, end: 20171227
  2. MEDROL [Suspect]
     Active Substance: METHYLPREDNISOLONE
     Dosage: 28 MG, 1X/DAY
     Route: 048
     Dates: start: 20171228, end: 20180104
  3. IMURAN [Suspect]
     Active Substance: AZATHIOPRINE
     Dosage: 50 MG, 2X/DAY
     Route: 048
     Dates: start: 20180105, end: 20180109
  4. ALENDRONATE D3 [Concomitant]
     Indication: OSTEOPOROSIS
     Dosage: 70 MG, WEEKLY, ONCE A WEEK
     Dates: start: 20171228, end: 20180109
  5. BAYASPIRIN [Concomitant]
     Active Substance: ASPIRIN
     Indication: PLATELET DISORDER
     Dosage: 100 MG, 1X/DAY
     Route: 048
     Dates: start: 20171213, end: 20180109
  6. FLUIMUCIL [Concomitant]
     Active Substance: ACETYLCYSTEINE
     Indication: SPUTUM ABNORMAL
     Dosage: 0.6 G, 2X/DAY
     Route: 048
     Dates: start: 20180105, end: 20180109
  7. LIPITOR [Suspect]
     Active Substance: ATORVASTATIN CALCIUM
     Indication: LIPIDS ABNORMAL
     Dosage: 20 MG, 1X/DAY
     Route: 048
     Dates: start: 20171228, end: 20180109
  8. FEN LE (ARIPIPRAZOLE) [Suspect]
     Active Substance: ARIPIPRAZOLE
     Indication: INFECTION
     Dosage: 0.4 G, 1X/DAY
     Route: 048
     Dates: start: 20171220, end: 20180109
  9. FA NENG [Concomitant]
     Indication: OSTEOPOROSIS
     Dosage: 0.5 UG, 1X/DAY
     Route: 048
     Dates: start: 20171228, end: 20180109
  10. WEI ER GU [Concomitant]
     Indication: INFECTION
     Dosage: 0.48 G, 2X/DAY
     Route: 048
     Dates: start: 20171228, end: 20180109
  11. RABEZOLE [Concomitant]
     Active Substance: RABEPRAZOLE SODIUM
     Indication: HYPERCHLORHYDRIA
     Dosage: 20 MG, 1X/DAY
     Route: 048
     Dates: start: 20171213, end: 20180109
  12. IMURAN [Suspect]
     Active Substance: AZATHIOPRINE
     Indication: IMMUNOSUPPRESSION
     Dosage: 50 MG, 2X/DAY
     Route: 048
     Dates: start: 20171213, end: 20180104
  13. MEDROL [Suspect]
     Active Substance: METHYLPREDNISOLONE
     Dosage: 24 MG, 1X/DAY
     Route: 048
     Dates: start: 20180105, end: 20180109
  14. CALCIUM CARBONATE D3 [Concomitant]
     Indication: MINERAL SUPPLEMENTATION
     Dosage: 1 DF, 1X/DAY
     Route: 048
     Dates: start: 20171228, end: 20180109

REACTIONS (2)
  - Mixed liver injury [Recovering/Resolving]
  - Drug-induced liver injury [Recovering/Resolving]

NARRATIVE: CASE EVENT DATE: 20180109
